FAERS Safety Report 4828752-7 (Version None)
Quarter: 2005Q4

REPORT INFORMATION
  Report Type: 
  Country: None (occurrence: None)
  Receive Date: 20051115
  Receipt Date: 20051103
  Transmission Date: 20060501
  Serious: Yes (Hospitalization)
  Sender: FDA-Public Use
  Company Number: US-AVENTIS-200519139US

PATIENT
  Sex: Male
  Weight: 74.4 kg

DRUGS (9)
  1. GLYBURIDE [Suspect]
  2. ACTOS [Concomitant]
     Dosage: DOSE: UNK
     Dates: end: 20050901
  3. DIGOXIN [Concomitant]
     Dosage: DOSE: UNK
     Dates: start: 20050908
  4. LIPITOR [Concomitant]
     Dosage: DOSE: UNK
  5. DARVOCET-N 100 [Concomitant]
     Dosage: DOSE: UNK
  6. TOPROL-XL [Concomitant]
     Dosage: DOSE: UNK
  7. LASIX [Concomitant]
     Dosage: DOSE: UNK
  8. LISINOPRIL [Concomitant]
     Dosage: DOSE: UNK
  9. INSULIN NOS [Concomitant]
     Dates: end: 20050801

REACTIONS (23)
  - ASTHENIA [None]
  - BLOOD CREATININE INCREASED [None]
  - BLOOD GLUCOSE FLUCTUATION [None]
  - BLOOD GLUCOSE INCREASED [None]
  - CARDIAC FAILURE CONGESTIVE [None]
  - CARDIAC MURMUR [None]
  - CONFUSIONAL STATE [None]
  - DECREASED APPETITE [None]
  - FEELING JITTERY [None]
  - GLYCOSYLATED HAEMOGLOBIN INCREASED [None]
  - HYPERHIDROSIS [None]
  - HYPERLIPIDAEMIA [None]
  - HYPOGLYCAEMIA [None]
  - LEUKOCYTOSIS [None]
  - MALAISE [None]
  - MEDICATION ERROR [None]
  - NAUSEA [None]
  - RALES [None]
  - SHOULDER PAIN [None]
  - TACHYCARDIA [None]
  - TREMOR [None]
  - VOMITING [None]
  - WEIGHT DECREASED [None]
